FAERS Safety Report 19499785 (Version 2)
Quarter: 2021Q3

REPORT INFORMATION
  Report Type: Report from Study
  Country: NL (occurrence: NL)
  Receive Date: 20210706
  Receipt Date: 20210720
  Transmission Date: 20211014
  Serious: Yes (Hospitalization)
  Sender: FDA-Public Use
  Company Number: NL-PFIZER INC-2021806782

PATIENT
  Age: 59 Year
  Sex: Male

DRUGS (5)
  1. MACROGOL [Concomitant]
     Active Substance: POLYETHYLENE GLYCOLS
     Indication: CONSTIPATION
     Dosage: 1 SACHET, DAILY
     Route: 048
     Dates: start: 20210602
  2. MORPHINE [Concomitant]
     Active Substance: MORPHINE
     Indication: DYSPNOEA
     Dosage: 10 MG, AS NEEDED
     Route: 048
     Dates: start: 20210602, end: 20210627
  3. MORPHINE [Concomitant]
     Active Substance: MORPHINE
     Indication: DYSPNOEA
     Dosage: 10 MG, 2X/DAY, RETARD
     Route: 048
     Dates: start: 20210602, end: 20210627
  4. BINIMETINIB [Suspect]
     Active Substance: BINIMETINIB
     Indication: NON-SMALL CELL LUNG CANCER
     Dosage: 45 MG, TWICE DAILY CONTINUOUS
     Route: 048
     Dates: start: 20200625, end: 20210526
  5. ENCORAFENIB [Suspect]
     Active Substance: ENCORAFENIB
     Indication: NON-SMALL CELL LUNG CANCER
     Dosage: 450 MG, ONCE DAILY CONTINUOUS
     Route: 048
     Dates: start: 20200625, end: 20210526

REACTIONS (1)
  - Dyspnoea [Not Recovered/Not Resolved]

NARRATIVE: CASE EVENT DATE: 20210627
